FAERS Safety Report 8899231 (Version 1)
Quarter: 2012Q4

REPORT INFORMATION
  Report Type: 
  Country: US (occurrence: US)
  Receive Date: 20121108
  Receipt Date: 20121108
  Transmission Date: 20130627
  Serious: No
  Sender: FDA-Public Use
  Company Number: US-AMGEN-USASP2012035485

PATIENT
  Age: 57 Year
  Sex: Male
  Weight: 104.3 kg

DRUGS (7)
  1. ENBREL [Suspect]
     Indication: PRODUCT USED FOR UNKNOWN INDICATION
     Dosage: 50 mg, qwk
     Route: 058
  2. SERTRALINE [Concomitant]
     Dosage: 25 mg, UNK
  3. AMLODIPINE [Concomitant]
     Dosage: 5 mg, UNK
  4. HYDROCHLOROTHIAZIDE W/TRIAMTERENE [Concomitant]
  5. BENADRYL ALLERGY                   /00000402/ [Concomitant]
     Dosage: 25 mg, UNK
  6. FISH OIL [Concomitant]
  7. ASPIRIN LOW [Concomitant]
     Dosage: 81 mg, UNK

REACTIONS (2)
  - Feeling abnormal [Unknown]
  - Eye disorder [Unknown]
